FAERS Safety Report 13909912 (Version 1)
Quarter: 2017Q3

REPORT INFORMATION
  Report Type: Spontaneous
  Country: US (occurrence: US)
  Receive Date: 20170828
  Receipt Date: 20170828
  Transmission Date: 20171127
  Serious: Yes (Other)
  Sender: FDA-Public Use
  Company Number: US-CIPLA LTD.-2017US14587

PATIENT

DRUGS (2)
  1. ETOPOSIDE. [Suspect]
     Active Substance: ETOPOSIDE
     Indication: CHOROID PLEXUS PAPILLOMA
     Dosage: 3 MG/KG, ON 3 CONSECUTIVE DAYS
     Route: 065
  2. CARBOPLATIN. [Suspect]
     Active Substance: CARBOPLATIN
     Indication: CHOROID PLEXUS PAPILLOMA
     Dosage: 8 MG/KG ON 2 CONSECUTIVE DAYS
     Route: 065

REACTIONS (5)
  - Irritability [Unknown]
  - Nausea [Unknown]
  - Hemiparesis [Unknown]
  - Vomiting [Unknown]
  - Neoplasm progression [Unknown]
